APPROVED DRUG PRODUCT: PROMACTA
Active Ingredient: ELTROMBOPAG OLAMINE
Strength: EQ 100MG ACID **Federal Register determination that product was not discontinued or withdrawn for safety or effectiveness reasons**
Dosage Form/Route: TABLET;ORAL
Application: N022291 | Product #005
Applicant: NOVARTIS PHARMACEUTICALS CORP
Approved: Nov 16, 2012 | RLD: Yes | RS: No | Type: DISCN

PATENTS:
Patent 7547719 | Expires: Jul 13, 2025
Patent 7547719 | Expires: Jul 13, 2025
Patent 7547719 | Expires: Jul 13, 2025
Patent 7547719*PED | Expires: Jan 13, 2026